FAERS Safety Report 20653850 (Version 4)
Quarter: 2022Q4

REPORT INFORMATION
  Report Type: Spontaneous
  Country: NL (occurrence: NL)
  Receive Date: 20220330
  Receipt Date: 20221220
  Transmission Date: 20230113
  Serious: Yes (Hospitalization, Other)
  Sender: FDA-Public Use
  Company Number: NL-PFIZER INC-202101352791

PATIENT
  Age: 31 Year
  Sex: Female

DRUGS (2)
  1. PREGABALIN [Suspect]
     Active Substance: PREGABALIN
     Indication: Product used for unknown indication
     Dosage: 1200MG (DOSE (MGKG-1)/15.7)
     Route: 048
  2. PREGABALIN [Suspect]
     Active Substance: PREGABALIN
     Dosage: 15.7 MILLIGRAM/KILOGRAM
     Route: 065

REACTIONS (5)
  - Somnolence [Unknown]
  - Apathy [Unknown]
  - Intentional overdose [Unknown]
  - Toxicity to various agents [Unknown]
  - Prescribed overdose [Unknown]
